FAERS Safety Report 10379810 (Version 1)
Quarter: 2014Q3

REPORT INFORMATION
  Report Type: Spontaneous
  Country: AU (occurrence: AU)
  Receive Date: 20140812
  Receipt Date: 20140812
  Transmission Date: 20150326
  Serious: Yes (Death, Hospitalization, Other)
  Sender: FDA-Public Use
  Company Number: AU-ASTRAZENECA-2014SE58930

PATIENT
  Age: 646 Month
  Sex: Female

DRUGS (8)
  1. INSULIN [Concomitant]
     Active Substance: INSULIN NOS
  2. AGOMELATINE [Concomitant]
     Active Substance: AGOMELATINE
  3. ZOLPIDEM [Concomitant]
     Active Substance: ZOLPIDEM\ZOLPIDEM TARTRATE
  4. QUETIAPINE [Suspect]
     Active Substance: QUETIAPINE
     Route: 048
  5. PROPRANOLOL [Suspect]
     Active Substance: PROPRANOLOL\PROPRANOLOL HYDROCHLORIDE
     Indication: ESSENTIAL TREMOR
     Dosage: THREE TIME A DAY WHEN REQUIRED
     Route: 048
  6. LITHIUM [Concomitant]
     Active Substance: LITHIUM CARBONATE
  7. ESCITALOPRAM [Concomitant]
     Active Substance: ESCITALOPRAM OXALATE
  8. LAMOTRIGINE. [Concomitant]
     Active Substance: LAMOTRIGINE

REACTIONS (28)
  - Completed suicide [Fatal]
  - Major depression [Unknown]
  - Drug abuse [Unknown]
  - Accidental overdose [Unknown]
  - Disturbance in social behaviour [Unknown]
  - Abnormal behaviour [Unknown]
  - Substance abuse [Unknown]
  - Intentional overdose [Fatal]
  - Essential tremor [Unknown]
  - Elevated mood [Unknown]
  - Drug dependence [Unknown]
  - Judgement impaired [Unknown]
  - Accident [Unknown]
  - Sedation [Unknown]
  - Overdose [Unknown]
  - Alcohol abuse [Unknown]
  - Activities of daily living impaired [Unknown]
  - Toxicity to various agents [Fatal]
  - Thermal burn [Unknown]
  - Anxiety [Unknown]
  - Depressed mood [Unknown]
  - Insomnia [Unknown]
  - Confusional state [Unknown]
  - Borderline personality disorder [Unknown]
  - Impaired self-care [Unknown]
  - Balance disorder [Unknown]
  - Dysarthria [Unknown]
  - Therapy cessation [Unknown]

NARRATIVE: CASE EVENT DATE: 201204
